FAERS Safety Report 6133658-X (Version None)
Quarter: 2009Q1

REPORT INFORMATION
  Report Type: 
  Country: None (occurrence: None)
  Receive Date: 20090326
  Receipt Date: 20090320
  Transmission Date: 20090719
  Serious: Yes (Other)
  Sender: FDA-Public Use
  Company Number: A0774350A

PATIENT
  Age: 61 Year
  Sex: Female

DRUGS (5)
  1. LAMICTAL [Suspect]
     Indication: EPILEPSY
     Route: 048
     Dates: start: 20030101
  2. LIPITOR [Concomitant]
  3. THYROID MEDICATION [Concomitant]
  4. NEXIUM [Concomitant]
  5. VITAMIN [Concomitant]

REACTIONS (8)
  - AMNESIA [None]
  - CONFUSIONAL STATE [None]
  - CONVULSION [None]
  - DRUG LEVEL INCREASED [None]
  - FEELING JITTERY [None]
  - HOSTILITY [None]
  - SOMNOLENCE [None]
  - TREMOR [None]
